FAERS Safety Report 14682384 (Version 1)
Quarter: 2018Q1

REPORT INFORMATION
  Report Type: Spontaneous
  Country: US (occurrence: US)
  Receive Date: 20180326
  Receipt Date: 20180326
  Transmission Date: 20180509
  Serious: Yes (Other)
  Sender: FDA-Public Use
  Company Number: US-BEH-2018089043

PATIENT
  Age: 76 Year
  Sex: Female
  Weight: 43.99 kg

DRUGS (21)
  1. OXYGEN. [Concomitant]
     Active Substance: OXYGEN
  2. PROVENTIL [Concomitant]
     Active Substance: ALBUTEROL
  3. TRAVATAN Z [Concomitant]
     Active Substance: TRAVOPROST
  4. OMEPRAZOLE. [Concomitant]
     Active Substance: OMEPRAZOLE
  5. ZEMAIRA [Suspect]
     Active Substance: .ALPHA.1-PROTEINASE INHIBITOR HUMAN
     Indication: ALPHA-1 ANTI-TRYPSIN DEFICIENCY
     Dosage: 125 MG/KG, QOW
     Route: 042
     Dates: start: 20040611
  6. PREDNISONE. [Concomitant]
     Active Substance: PREDNISONE
  7. MULTIVITAMINS [Concomitant]
     Active Substance: VITAMINS
  8. ADVAIR HFA [Concomitant]
     Active Substance: FLUTICASONE PROPIONATE\SALMETEROL XINAFOATE
  9. SPIRIVA [Concomitant]
     Active Substance: TIOTROPIUM BROMIDE MONOHYDRATE
  10. ZEMAIRA [Suspect]
     Active Substance: .ALPHA.1-PROTEINASE INHIBITOR HUMAN
     Dosage: UNK
     Route: 042
  11. EPINEPHRINE. [Concomitant]
     Active Substance: EPINEPHRINE
  12. FUROSEMIDE. [Concomitant]
     Active Substance: FUROSEMIDE
  13. ALPHAGAN P [Concomitant]
     Active Substance: BRIMONIDINE TARTRATE
  14. HYDROCODONE BITARTRATE AND ACETAMINOPHEN [Concomitant]
     Active Substance: ACETAMINOPHEN\HYDROCODONE BITARTRATE
  15. REFRESH PLUS [Concomitant]
     Active Substance: CARBOXYMETHYLCELLULOSE SODIUM
  16. FLUTICASONE. [Concomitant]
     Active Substance: FLUTICASONE
  17. TAZTIA XT [Concomitant]
     Active Substance: DILTIAZEM HYDROCHLORIDE
  18. CALCIUM + D DUETTO [Concomitant]
     Active Substance: CALCIUM\CHOLECALCIFEROL
  19. ALENDRONATE [Concomitant]
     Active Substance: ALENDRONATE SODIUM
  20. DIPHENHYDRAMINE. [Concomitant]
     Active Substance: DIPHENHYDRAMINE
  21. SODIUM CHLORIDE. [Concomitant]
     Active Substance: SODIUM CHLORIDE

REACTIONS (1)
  - Spondylolisthesis [Unknown]

NARRATIVE: CASE EVENT DATE: 20180214
